FAERS Safety Report 11325016 (Version 1)
Quarter: 2015Q3

REPORT INFORMATION
  Report Type: Spontaneous
  Country: IL (occurrence: IL)
  Receive Date: 20150730
  Receipt Date: 20150730
  Transmission Date: 20151125
  Serious: Yes (Other)
  Sender: FDA-Public Use
  Company Number: IL-PFIZER INC-2015241468

PATIENT
  Age: 63 Year
  Sex: Female
  Weight: 51 kg

DRUGS (1)
  1. LIPITOR [Suspect]
     Active Substance: ATORVASTATIN CALCIUM
     Indication: BLOOD CHOLESTEROL INCREASED
     Dosage: 10 MG, UNK,

REACTIONS (11)
  - Sensory loss [Unknown]
  - Bone disorder [Unknown]
  - Muscular weakness [Unknown]
  - Amnesia [Unknown]
  - Blood glucose increased [Unknown]
  - Headache [Unknown]
  - Arthralgia [Unknown]
  - Muscle fatigue [Unknown]
  - Tinnitus [Unknown]
  - Vision blurred [Unknown]
  - Joint swelling [Unknown]
